FAERS Safety Report 18511729 (Version 1)
Quarter: 2020Q4

REPORT INFORMATION
  Report Type: Report from Study
  Country: CA (occurrence: CA)
  Receive Date: 20201117
  Receipt Date: 20201117
  Transmission Date: 20210114
  Serious: Yes (Life-Threatening, Other)
  Sender: FDA-Public Use
  Company Number: CA-IPSEN BIOPHARMACEUTICALS, INC.-2020-02521

PATIENT
  Age: 72 Year
  Sex: Female

DRUGS (11)
  1. GABAPENTIN. [Concomitant]
     Active Substance: GABAPENTIN
  2. PANTOPRAZOLE [Concomitant]
     Active Substance: PANTOPRAZOLE
  3. LEVEMIR [Concomitant]
     Active Substance: INSULIN DETEMIR
  4. ESTROGEN [Concomitant]
     Active Substance: ESTROGENS
  5. SPIRONOLACTONE. [Concomitant]
     Active Substance: SPIRONOLACTONE
  6. SOMATULINE AUTOGEL [Suspect]
     Active Substance: LANREOTIDE ACETATE
     Indication: NEUROENDOCRINE TUMOUR
     Route: 058
     Dates: start: 20180924
  7. SYMBICORT [Concomitant]
     Active Substance: BUDESONIDE\FORMOTEROL FUMARATE DIHYDRATE
  8. MIRTAZAPINE. [Concomitant]
     Active Substance: MIRTAZAPINE
  9. FUROSEMIDE. [Concomitant]
     Active Substance: FUROSEMIDE
  10. NOVORAPID [Concomitant]
     Active Substance: INSULIN ASPART
  11. CRESTOR [Concomitant]
     Active Substance: ROSUVASTATIN CALCIUM

REACTIONS (10)
  - Blood potassium decreased [Recovered/Resolved]
  - Localised infection [Recovered/Resolved with Sequelae]
  - Fall [Unknown]
  - Skin laceration [Recovered/Resolved]
  - Urinary tract infection [Recovered/Resolved]
  - Skin injury [Unknown]
  - Diarrhoea [Recovered/Resolved]
  - Wound necrosis [Not Recovered/Not Resolved]
  - Animal bite [Unknown]
  - Injection site pain [Recovered/Resolved]

NARRATIVE: CASE EVENT DATE: 20200201
